FAERS Safety Report 9880716 (Version 1)
Quarter: 2014Q1

REPORT INFORMATION
  Report Type: Spontaneous
  Country: US (occurrence: None)
  Receive Date: 20140206
  Receipt Date: 20140206
  Transmission Date: 20141002
  Serious: Yes (Hospitalization, Other)
  Sender: FDA-Public Use
  Company Number: None

PATIENT
  Age: 68 Year
  Sex: Female
  Weight: 73.8 kg

DRUGS (1)
  1. XARELTO 15 MG JANSSEN [Suspect]
     Indication: PULMONARY EMBOLISM
     Route: 048
     Dates: start: 20131217

REACTIONS (3)
  - Drug prescribing error [None]
  - Incorrect dose administered [None]
  - Acute myocardial infarction [None]
